FAERS Safety Report 20525756 (Version 1)
Quarter: 2022Q1

REPORT INFORMATION
  Report Type: Spontaneous
  Country: DE (occurrence: DE)
  Receive Date: 20220228
  Receipt Date: 20220228
  Transmission Date: 20220424
  Serious: Yes (Congenital Anomaly, Other)
  Sender: FDA-Public Use
  Company Number: None

PATIENT
  Age: 3 Week
  Sex: Male
  Weight: 3 kg

DRUGS (3)
  1. VENLAFAXINE [Suspect]
     Active Substance: VENLAFAXINE HYDROCHLORIDE
     Indication: Depression
     Dosage: 225 MG/D (BIS 150)
     Route: 064
     Dates: start: 20201118
  2. L-Thyrox HEXAL 100 [Concomitant]
     Indication: Hypothyroidism
     Dosage: 100 MCG/D
     Route: 064
     Dates: start: 20201118, end: 20210811
  3. MISOPROSTOL [Concomitant]
     Active Substance: MISOPROSTOL
     Indication: Labour induction
     Dosage: UNKNOWN
     Route: 064

REACTIONS (4)
  - Congenital megaureter [Unknown]
  - Foetal exposure during pregnancy [Unknown]
  - Poor weight gain neonatal [Recovered/Resolved]
  - Pyelonephritis [Recovered/Resolved]
